FAERS Safety Report 4523294-0 (Version None)
Quarter: 2004Q4

REPORT INFORMATION
  Report Type: 
  Country: None (occurrence: None)
  Receive Date: 20041202
  Receipt Date: 20041117
  Transmission Date: 20050328
  Serious: Yes (Hospitalization)
  Sender: FDA-Public Use
  Company Number: THYM-10350

PATIENT
  Sex: Male

DRUGS (4)
  1. THYMOGLOBULIN [Suspect]
     Indication: DRUG USE FOR UNKNOWN INDICATION
     Dates: start: 20041104
  2. ACETAMINOPHEN [Concomitant]
  3. BENADRYL [Concomitant]
  4. SOLU-MEDROL [Concomitant]

REACTIONS (4)
  - CHILLS [None]
  - DELIRIUM [None]
  - PSYCHOTIC DISORDER [None]
  - PYREXIA [None]
